FAERS Safety Report 7801847-1 (Version None)
Quarter: 2011Q4

REPORT INFORMATION
  Report Type: 
  Country: None (occurrence: None)
  Receive Date: 20111005
  Receipt Date: 20110927
  Transmission Date: 20120403
  Serious: Yes (Hospitalization, Other)
  Sender: FDA-Public Use
  Company Number: AUR-APL-2011-05211

PATIENT
  Sex: Female
  Weight: 4.27 kg

DRUGS (1)
  1. PAROXETINE HCL [Suspect]
     Indication: DEPRESSION
     Dosage: (20 MG, 1 D), TRANSPLACENTAL
     Route: 064

REACTIONS (7)
  - MATERNAL DRUGS AFFECTING FOETUS [None]
  - LARGE FOR DATES BABY [None]
  - DYSPNOEA [None]
  - OXYGEN SATURATION DECREASED [None]
  - HYPOTONIA NEONATAL [None]
  - TONIC CONVULSION [None]
  - CONVULSION NEONATAL [None]
